FAERS Safety Report 8187593-6 (Version None)
Quarter: 2012Q1

REPORT INFORMATION
  Report Type: 
  Country: None (occurrence: None)
  Receive Date: 20120306
  Receipt Date: 20120222
  Transmission Date: 20120608
  Serious: Yes (Hospitalization)
  Sender: FDA-Public Use
  Company Number: JP-ELI_LILLY_AND_COMPANY-JP201202006974

PATIENT
  Age: 15 Year
  Sex: Female

DRUGS (4)
  1. RISPERIDONE [Concomitant]
     Dosage: UNK
     Dates: end: 20120217
  2. ZYPREXA [Suspect]
     Indication: SCHIZOPHRENIA
     Dosage: 10 MG, QD
     Route: 048
     Dates: end: 20120201
  3. LULLAN [Concomitant]
     Indication: SCHIZOPHRENIA
     Dosage: UNK
  4. ZYPREXA [Suspect]
     Dosage: 2.5 MG, QD
     Route: 048
     Dates: start: 20120201, end: 20120217

REACTIONS (4)
  - DELUSION [None]
  - HYPERGLYCAEMIA [None]
  - HALLUCINATION [None]
  - HYPOGLYCAEMIA [None]
